FAERS Safety Report 10683434 (Version 1)
Quarter: 2014Q4

REPORT INFORMATION
  Report Type: Spontaneous
  Country: US (occurrence: US)
  Receive Date: 20141230
  Receipt Date: 20141230
  Transmission Date: 20150529
  Serious: No
  Sender: FDA-Public Use
  Company Number: US-009507513-1412USA003004

PATIENT
  Age: 22 Year
  Sex: Female
  Weight: 81.63 kg

DRUGS (1)
  1. IMPLANON [Suspect]
     Active Substance: ETONOGESTREL
     Dosage: LEFT ARM
     Dates: start: 20130404

REACTIONS (3)
  - Headache [Unknown]
  - Anxiety [Unknown]
  - Nausea [Unknown]

NARRATIVE: CASE EVENT DATE: 201403
